FAERS Safety Report 17949375 (Version 2)
Quarter: 2020Q2

REPORT INFORMATION
  Report Type: Report from Study
  Country: CA (occurrence: CA)
  Receive Date: 20200625
  Receipt Date: 20200629
  Transmission Date: 20200714
  Serious: Yes (Other)
  Sender: FDA-Public Use
  Company Number: PHHY2017CA074709

PATIENT
  Age: 48 Year
  Sex: Female

DRUGS (4)
  1. ZOFRAN [Suspect]
     Active Substance: ONDANSETRON HYDROCHLORIDE
     Indication: PRODUCT USED FOR UNKNOWN INDICATION
     Dosage: UNK
     Route: 065
  2. FENTANYL. [Suspect]
     Active Substance: FENTANYL
     Indication: PRODUCT USED FOR UNKNOWN INDICATION
     Dosage: UNK
     Route: 065
  3. SANDOSTATIN LAR DEPOT [Suspect]
     Active Substance: OCTREOTIDE ACETATE
     Indication: CARCINOID TUMOUR
     Dosage: 30 MG, QMO
     Route: 030
     Dates: start: 20170424
  4. VERSED [Suspect]
     Active Substance: MIDAZOLAM HYDROCHLORIDE
     Indication: PRODUCT USED FOR UNKNOWN INDICATION
     Dosage: UNK
     Route: 065

REACTIONS (37)
  - Nodule [Unknown]
  - Nasal congestion [Not Recovered/Not Resolved]
  - Drug intolerance [Unknown]
  - Influenza like illness [Recovered/Resolved]
  - Diarrhoea [Recovered/Resolved]
  - Dizziness [Unknown]
  - Memory impairment [Unknown]
  - Headache [Recovered/Resolved]
  - Abdominal pain upper [Recovered/Resolved]
  - White blood cell count decreased [Unknown]
  - Abdominal distension [Unknown]
  - Hot flush [Unknown]
  - Cholelithiasis [Unknown]
  - Injection site mass [Not Recovered/Not Resolved]
  - Induration [Unknown]
  - Faeces discoloured [Unknown]
  - Product storage error [Unknown]
  - Injection site induration [Unknown]
  - Musculoskeletal stiffness [Unknown]
  - Myalgia [Recovered/Resolved]
  - Nausea [Recovered/Resolved]
  - Flatulence [Unknown]
  - Arthralgia [Unknown]
  - Feeling abnormal [Unknown]
  - Blood pressure systolic decreased [Unknown]
  - Pollakiuria [Unknown]
  - Increased appetite [Unknown]
  - Malaise [Unknown]
  - Oropharyngeal pain [Recovered/Resolved]
  - Abdominal pain lower [Unknown]
  - Diarrhoea [Unknown]
  - Fatigue [Unknown]
  - Injection site pain [Unknown]
  - Metastasis [Unknown]
  - Movement disorder [Unknown]
  - Abdominal pain [Unknown]
  - Eczema eyelids [Unknown]

NARRATIVE: CASE EVENT DATE: 20170424
